FAERS Safety Report 8702299 (Version 3)
Quarter: 2012Q4

REPORT INFORMATION
  Report Type: Spontaneous
  Country: JP (occurrence: None)
  Receive Date: 20120719
  Receipt Date: 20121011
  Transmission Date: 20130627
  Serious: Yes (Other)
  Sender: FDA-Public Use
  Company Number: DSA_58510_2012

PATIENT
  Sex: Male

DRUGS (2)
  1. MACUGEN [Suspect]
     Indication: AGE-RELATED MACULAR DEGENERATION
     Dosage: (0.3 MG/TIME INTRAOCULAR)
     Route: 031
     Dates: start: 20100510
  2. LEVOFLOXACIN [Concomitant]

REACTIONS (1)
  - No adverse event [None]
